FAERS Safety Report 5702023-9 (Version None)
Quarter: 2008Q2

REPORT INFORMATION
  Report Type: 
  Country: None (occurrence: None)
  Receive Date: 20080411
  Receipt Date: 20071018
  Transmission Date: 20081010
  Serious: No
  Sender: FDA-Public Use
  Company Number: US-ABBOTT-07P-163-0421258-00

PATIENT
  Sex: Male
  Weight: 90.8 kg

DRUGS (7)
  1. DEPAKOTE [Suspect]
     Indication: MOOD SWINGS
     Route: 048
  2. DEPAKOTE [Suspect]
     Indication: BIPOLAR DISORDER
  3. BENADRYL [Concomitant]
     Indication: DRUG USE FOR UNKNOWN INDICATION
     Route: 048
  4. RESPIDAL [Concomitant]
     Indication: BIPOLAR DISORDER
     Route: 048
     Dates: start: 20060101
  5. RESPIDAL [Concomitant]
     Indication: MOOD SWINGS
  6. BENZTROPINE MESYLATE [Concomitant]
     Indication: BIPOLAR DISORDER
     Route: 048
  7. BENZTROPINE MESYLATE [Concomitant]
     Indication: MOOD SWINGS

REACTIONS (2)
  - ALOPECIA [None]
  - DENTAL CARIES [None]
